FAERS Safety Report 5241073-6 (Version None)
Quarter: 2007Q1

REPORT INFORMATION
  Report Type: 
  Country: None (occurrence: None)
  Receive Date: 20070214
  Receipt Date: 20070214
  Transmission Date: 20070707
  Serious: Yes (Life-Threatening)
  Sender: FDA-Public Use
  Company Number: None

PATIENT
  Sex: Male
  Weight: 104.3273 kg

DRUGS (1)
  1. REQUIP [Suspect]
     Indication: RESTLESS LEGS SYNDROME
     Dosage: ONE TABLET  DAILY BEFORE BEDTI   PO
     Route: 048
     Dates: start: 20070122, end: 20070209

REACTIONS (3)
  - CONFUSIONAL STATE [None]
  - ROAD TRAFFIC ACCIDENT [None]
  - WOUND [None]
